FAERS Safety Report 18441041 (Version 1)
Quarter: 2020Q4

REPORT INFORMATION
  Report Type: Spontaneous
  Country: US (occurrence: US)
  Receive Date: 20201029
  Receipt Date: 20201029
  Transmission Date: 20210114
  Serious: Yes (Other)
  Sender: FDA-Public Use
  Company Number: US-SPECGX-T202002117

PATIENT
  Age: 26 Year
  Sex: Male

DRUGS (1)
  1. FENTANYL CITRATE. [Suspect]
     Active Substance: FENTANYL CITRATE
     Indication: PRODUCT USED FOR UNKNOWN INDICATION
     Dosage: UNK
     Route: 045

REACTIONS (11)
  - Meningitis meningococcal [Unknown]
  - Unresponsive to stimuli [Unknown]
  - Hypoxia [Unknown]
  - Bradypnoea [Unknown]
  - Overdose [Unknown]
  - Incorrect route of product administration [Unknown]
  - Pneumonitis [Unknown]
  - Drug use disorder [Unknown]
  - Miosis [Unknown]
  - Respiratory depression [Unknown]
  - Tachypnoea [Unknown]
